FAERS Safety Report 21621083 (Version 1)
Quarter: 2022Q4

REPORT INFORMATION
  Report Type: Spontaneous
  Country: JP (occurrence: JP)
  Receive Date: 20221121
  Receipt Date: 20221121
  Transmission Date: 20230112
  Serious: Yes (Other)
  Sender: FDA-Public Use
  Company Number: JP-TAKEDA-2022TUS086888

PATIENT
  Age: 45 Year
  Sex: Male

DRUGS (2)
  1. LANSOPRAZOLE [Suspect]
     Active Substance: LANSOPRAZOLE
     Indication: Gastroduodenal ulcer
     Dosage: 15 MILLIGRAM
     Route: 048
     Dates: start: 200606
  2. CLOPIDOGREL [Concomitant]
     Active Substance: CLOPIDOGREL BISULFATE
     Indication: Angina pectoris
     Dosage: 75 MILLIGRAM
     Route: 048

REACTIONS (1)
  - Gastric neuroendocrine carcinoma [Recovering/Resolving]
